FAERS Safety Report 12453524 (Version 3)
Quarter: 2019Q2

REPORT INFORMATION
  Report Type: Spontaneous
  Country: US (occurrence: US)
  Receive Date: 20160609
  Receipt Date: 20190402
  Transmission Date: 20190711
  Serious: Yes (Hospitalization, Other)
  Sender: FDA-Public Use
  Company Number: US-DSJP-DSU-2015-134190

PATIENT

DRUGS (8)
  1. ADVIL [Concomitant]
     Active Substance: IBUPROFEN
     Indication: PAIN
  2. BENICAR HCT [Suspect]
     Active Substance: HYDROCHLOROTHIAZIDE\OLMESARTAN MEDOXOMIL
     Dosage: 40/12.5 MG, QD
     Route: 048
     Dates: start: 20100330, end: 20131213
  3. BENICAR HCT [Suspect]
     Active Substance: HYDROCHLOROTHIAZIDE\OLMESARTAN MEDOXOMIL
     Dosage: 40/12.5 MG, QD
     Route: 048
     Dates: start: 20080518, end: 20090920
  4. BENAZEPRIL HYDROCHLORIDE AND HYDROCHLOROTHIAZIDE [Concomitant]
     Active Substance: BENAZEPRIL HYDROCHLORIDE\HYDROCHLOROTHIAZIDE
     Indication: HYPERTENSION
     Dosage: UNK
     Dates: start: 200909, end: 201003
  5. BENICAR [Suspect]
     Active Substance: OLMESARTAN MEDOXOMIL
     Indication: HYPERTENSION
     Dosage: 40 MG, UNK
     Route: 048
     Dates: start: 20140122, end: 20140126
  6. BENICAR HCT [Suspect]
     Active Substance: HYDROCHLOROTHIAZIDE\OLMESARTAN MEDOXOMIL
     Indication: HYPERTENSION
     Dosage: 20/12.5 MG, QD
     Route: 048
     Dates: start: 20080126, end: 20080225
  7. BENICAR HCT [Suspect]
     Active Substance: HYDROCHLOROTHIAZIDE\OLMESARTAN MEDOXOMIL
     Dosage: 40/12.5 MG, QD
     Route: 048
     Dates: start: 20140127, end: 20140715
  8. ADVIL [Concomitant]
     Active Substance: IBUPROFEN
     Indication: HEADACHE
     Dosage: UNK
     Dates: start: 2007

REACTIONS (8)
  - Sprue-like enteropathy [Recovering/Resolving]
  - Hepatic function abnormal [Recovering/Resolving]
  - Haematuria [Recovered/Resolved]
  - Acute kidney injury [Recovered/Resolved]
  - Hypotension [Unknown]
  - Renal disorder [Recovered/Resolved]
  - Jaundice [Recovered/Resolved]
  - Hiatus hernia [Unknown]

NARRATIVE: CASE EVENT DATE: 201405
